FAERS Safety Report 5049117-1 (Version None)
Quarter: 2006Q3

REPORT INFORMATION
  Report Type: 
  Country: None (occurrence: None)
  Receive Date: 20060712
  Receipt Date: 20050413
  Transmission Date: 20061208
  Serious: Yes (Hospitalization)
  Sender: FDA-Public Use
  Company Number: PHBS2005FR05175

PATIENT
  Age: 64 Year
  Sex: Male

DRUGS (6)
  1. EUPANTOL [Suspect]
     Dosage: 40 MG/DAY
     Route: 048
     Dates: start: 20050114, end: 20050124
  2. THIOCOLCHICOSIDE [Suspect]
     Route: 048
     Dates: start: 20050114, end: 20050124
  3. ZAMUDOL [Suspect]
     Route: 048
     Dates: start: 20050114, end: 20050124
  4. NEXEN [Suspect]
     Dosage: 100 MG, UNK
     Route: 048
     Dates: start: 20050114, end: 20050124
  5. AMLOR [Concomitant]
  6. FRACTAL [Suspect]

REACTIONS (5)
  - BLOOD IMMUNOGLOBULIN E INCREASED [None]
  - DERMATITIS BULLOUS [None]
  - PEMPHIGOID [None]
  - PRURITUS [None]
  - RASH [None]
